FAERS Safety Report 4324244-2 (Version None)
Quarter: 2004Q1

REPORT INFORMATION
  Report Type: 
  Country: None (occurrence: None)
  Receive Date: 20040326
  Receipt Date: 20031216
  Transmission Date: 20041129
  Serious: No
  Sender: FDA-Public Use
  Company Number: US-GLAXOSMITHKLINE-A0492938A

PATIENT
  Age: 9 Year
  Sex: Male

DRUGS (1)
  1. ADVAIR DISKUS 100/50 [Suspect]
     Route: 055

REACTIONS (3)
  - DYSGEUSIA [None]
  - INSOMNIA [None]
  - NAUSEA [None]
